FAERS Safety Report 7366987-2 (Version None)
Quarter: 2011Q1

REPORT INFORMATION
  Report Type: 
  Country: None (occurrence: None)
  Receive Date: 20110317
  Receipt Date: 20110317
  Transmission Date: 20110831
  Serious: Yes (Life-Threatening, Hospitalization)
  Sender: FDA-Public Use
  Company Number: None

PATIENT
  Sex: Male
  Weight: 8.425 kg

DRUGS (2)
  1. ARA-C [Concomitant]
  2. PEGASPARGASE 3750UNITS/5ML AVENTIS PHARMACEUTICALS [Suspect]
     Indication: CHEMOTHERAPY
     Dosage: 1000 UNITS EVERY 2 MONTH IM
     Route: 030
     Dates: start: 20101116, end: 20110116

REACTIONS (8)
  - UNRESPONSIVE TO STIMULI [None]
  - TACHYCARDIA [None]
  - RESPIRATORY DEPRESSION [None]
  - HYPERTENSION [None]
  - HAEMOPHILUS TEST POSITIVE [None]
  - CLONIC CONVULSION [None]
  - RESPIRATORY DISORDER [None]
  - MYDRIASIS [None]
